FAERS Safety Report 9863719 (Version 2)
Quarter: 2014Q1

REPORT INFORMATION
  Report Type: Spontaneous
  Country: JP (occurrence: JP)
  Receive Date: 20140203
  Receipt Date: 20140221
  Transmission Date: 20141002
  Serious: Yes (Hospitalization)
  Sender: FDA-Public Use
  Company Number: PHHY2014JP012198

PATIENT
  Age: 41 Year
  Sex: Male

DRUGS (4)
  1. DIOVAN [Suspect]
     Indication: HYPERTENSION
     Dosage: 1 DF, (80 MG) DAILY
     Route: 048
     Dates: start: 2010, end: 20130522
  2. ADALAT [Concomitant]
     Dosage: 1 DF, 20 MG
     Route: 048
     Dates: start: 2010, end: 20130522
  3. IRBESARTAN [Concomitant]
     Dosage: 1 DF (COMBINED WITH AMLODIPINE)
     Route: 048
     Dates: start: 20130523
  4. AMLODIPINE [Concomitant]
     Dosage: 1 DF(COMBINED WITH IRBESARTAN)
     Route: 048
     Dates: start: 20130523

REACTIONS (1)
  - Myocardial infarction [Unknown]
